FAERS Safety Report 5981927-6 (Version None)
Quarter: 2008Q4

REPORT INFORMATION
  Report Type: 
  Country: None (occurrence: None)
  Receive Date: 20081205
  Receipt Date: 20080222
  Transmission Date: 20090506
  Serious: No
  Sender: FDA-Public Use
  Company Number: US-AMGEN-KDL266646

PATIENT
  Sex: Male

DRUGS (4)
  1. ENBREL [Suspect]
     Indication: PSORIASIS
     Dates: start: 20080214
  2. ZANTAC [Concomitant]
  3. NAPROXEN [Concomitant]
  4. TRAMADOL HCL [Concomitant]

REACTIONS (1)
  - FATIGUE [None]
